FAERS Safety Report 15766528 (Version 1)
Quarter: 2018Q4

REPORT INFORMATION
  Report Type: Spontaneous
  Country: ES (occurrence: ES)
  Receive Date: 20181227
  Receipt Date: 20181227
  Transmission Date: 20190205
  Serious: Yes (Other)
  Sender: FDA-Public Use
  Company Number: ES-PFIZER INC-2018526038

PATIENT
  Age: 5 Year
  Sex: Male

DRUGS (4)
  1. COTRIMOXAZOLE [Concomitant]
     Active Substance: SULFAMETHOXAZOLE\TRIMETHOPRIM
     Dosage: UNK
  2. METHYLPREDNISOLONE SODIUM SUCCINATE. [Suspect]
     Active Substance: METHYLPREDNISOLONE SODIUM SUCCINATE
     Indication: DEFICIENCY OF THE INTERLEUKIN-36 RECEPTOR ANTAGONIST
     Dosage: 2 MG/KG, 1X/DAY
     Route: 042
  3. CEFOTAXIME [Concomitant]
     Active Substance: CEFOTAXIME SODIUM
     Indication: BLOOD CULTURE POSITIVE
     Dosage: UNK
  4. ANAKINRA [Concomitant]
     Active Substance: ANAKINRA
     Indication: DEFICIENCY OF THE INTERLEUKIN-36 RECEPTOR ANTAGONIST
     Dosage: 2 MG/KG, 1X/DAY
     Route: 058

REACTIONS (1)
  - Rebound effect [Recovered/Resolved]
